FAERS Safety Report 14139763 (Version 1)
Quarter: 2017Q4

REPORT INFORMATION
  Report Type: Spontaneous
  Country: GB (occurrence: GB)
  Receive Date: 20171029
  Receipt Date: 20171029
  Transmission Date: 20180321
  Serious: Yes (Death, Hospitalization, Other)
  Sender: FDA-Public Use
  Company Number: GB-BAXTER-2017BAX035689

PATIENT
  Age: 7 Year
  Sex: Male
  Weight: 23 kg

DRUGS (7)
  1. ACTINOMYCIN D [Suspect]
     Active Substance: DACTINOMYCIN
     Indication: ALK GENE REARRANGEMENT POSITIVE
     Route: 065
     Dates: start: 20170728, end: 20170728
  2. CYCLOPHOSPHAMIDE INJECTION 1G [Suspect]
     Active Substance: CYCLOPHOSPHAMIDE
     Indication: ALK GENE REARRANGEMENT POSITIVE
     Dosage: STANDARD SARCOMA CHEMOTHERAPY, VAC PROTOCOL
     Route: 065
     Dates: start: 20170728, end: 20170728
  3. VINCRISTINE SULFATE. [Suspect]
     Active Substance: VINCRISTINE SULFATE
     Indication: EPITHELIOID SARCOMA
  4. CYCLOPHOSPHAMIDE INJECTION 1G [Suspect]
     Active Substance: CYCLOPHOSPHAMIDE
     Indication: EPITHELIOID SARCOMA
  5. VINCRISTINE SULFATE. [Suspect]
     Active Substance: VINCRISTINE SULFATE
     Indication: ALK GENE REARRANGEMENT POSITIVE
     Dosage: STANDARD SARCOMA CHEMOTHERAPY
     Route: 065
     Dates: start: 20170728, end: 20170728
  6. XALKORI [Suspect]
     Active Substance: CRIZOTINIB
     Indication: EPITHELIOID SARCOMA METASTATIC
     Dosage: SINGLE DOSE, VIA A NASOGASTRIC TUBE
     Route: 048
     Dates: start: 20170811, end: 20170811
  7. ACTINOMYCIN D [Suspect]
     Active Substance: DACTINOMYCIN
     Indication: EPITHELIOID SARCOMA

REACTIONS (9)
  - Sarcoma metastatic [Fatal]
  - Malaise [Fatal]
  - Pleural effusion [Fatal]
  - Acidosis [Fatal]
  - Ascites [Unknown]
  - Systemic candida [Fatal]
  - Multiple organ dysfunction syndrome [Fatal]
  - Hypoxia [Fatal]
  - Sepsis [Unknown]

NARRATIVE: CASE EVENT DATE: 2017
